FAERS Safety Report 9224716 (Version 1)
Quarter: 2013Q2

REPORT INFORMATION
  Report Type: Spontaneous
  Country: US (occurrence: None)
  Receive Date: 20130409
  Receipt Date: 20130409
  Transmission Date: 20140414
  Serious: No
  Sender: FDA-Public Use
  Company Number: None

PATIENT
  Age: 7 Year
  Sex: Female
  Weight: 24 kg

DRUGS (1)
  1. PIPERACILLIN [Suspect]
     Route: 042

REACTIONS (2)
  - Product deposit [None]
  - Product substitution issue [None]
